FAERS Safety Report 18061006 (Version 4)
Quarter: 2020Q4

REPORT INFORMATION
  Report Type: Spontaneous
  Country: US (occurrence: US)
  Receive Date: 20200723
  Receipt Date: 20201204
  Transmission Date: 20210113
  Serious: No
  Sender: FDA-Public Use
  Company Number: US-HORIZON-ACT-0280-2020

PATIENT
  Age: 45 Year
  Sex: Male

DRUGS (4)
  1. ACTIMMUNE [Suspect]
     Active Substance: INTERFERON GAMMA-1B
     Indication: CHRONIC GRANULOMATOUS DISEASE
     Dosage: 100 ??G TIW 3 SEPARATED DOSES
     Route: 050
     Dates: start: 20200201
  2. VITRAKVI [Concomitant]
     Active Substance: LAROTRECTINIB
  3. PHENERGAN [Concomitant]
     Active Substance: PROMETHAZINE HYDROCHLORIDE
     Indication: NAUSEA
  4. AZITHROMYCIN ANHYDROUS. [Concomitant]
     Active Substance: AZITHROMYCIN ANHYDROUS
     Route: 042

REACTIONS (6)
  - Influenza like illness [Not Recovered/Not Resolved]
  - Off label use [Not Recovered/Not Resolved]
  - Chills [Not Recovered/Not Resolved]
  - Pyrexia [Not Recovered/Not Resolved]
  - Drug interaction [Unknown]
  - Nausea [Recovering/Resolving]

NARRATIVE: CASE EVENT DATE: 20201017
